FAERS Safety Report 8954748 (Version 1)
Quarter: 2012Q4

REPORT INFORMATION
  Report Type: 
  Country: US (occurrence: US)
  Receive Date: 20121207
  Receipt Date: 20121207
  Transmission Date: 20130627
  Serious: Yes (Hospitalization)
  Sender: FDA-Public Use
  Company Number: US-GLAXOSMITHKLINE-A1004427A

PATIENT
  Age: 42 Year
  Sex: Female

DRUGS (1)
  1. FLOLAN [Suspect]
     Dosage: 5.7NGKM Continuous
     Route: 042
     Dates: start: 20121014

REACTIONS (1)
  - Lung infection [Unknown]
